FAERS Safety Report 8799342 (Version 2)
Quarter: 2013Q1

REPORT INFORMATION
  Report Type: Report from Study
  Country: CA (occurrence: CA)
  Receive Date: 20120920
  Receipt Date: 20130109
  Transmission Date: 20140127
  Serious: Yes (Life-Threatening, Hospitalization, Disabling)
  Sender: FDA-Public Use
  Company Number: CA-BAXTER-2012BAX016946

PATIENT
  Age: 60 Year
  Sex: Male
  Weight: 108.6 kg

DRUGS (53)
  1. CYCLOPHOSPHAMIDE INJECTION 500 MG [Suspect]
     Indication: DIFFUSE LARGE B-CELL LYMPHOMA
     Route: 042
     Dates: start: 20111205
  2. CYCLOPHOSPHAMIDE INJECTION 500 MG [Suspect]
     Route: 042
     Dates: start: 20120117
  3. DOXORUBICIN HYDROCHLORIDE [Suspect]
     Indication: DIFFUSE LARGE B-CELL LYMPHOMA
     Route: 042
     Dates: start: 20111205
  4. DOXORUBICIN HYDROCHLORIDE [Suspect]
     Route: 042
     Dates: start: 20120117
  5. PREDNISOLONE [Suspect]
     Indication: DIFFUSE LARGE B-CELL LYMPHOMA
     Route: 048
     Dates: start: 20111205
  6. PREDNISOLONE [Suspect]
     Route: 048
     Dates: start: 20111209
  7. PREDNISOLONE [Suspect]
     Route: 048
     Dates: start: 20120121
  8. VINCRISTINE [Suspect]
     Indication: DIFFUSE LARGE B-CELL LYMPHOMA
     Route: 042
     Dates: start: 20111205
  9. VINCRISTINE [Suspect]
     Route: 042
     Dates: start: 20120117
  10. ACETAMINOPHEN [Concomitant]
     Indication: PRODUCT USED FOR UNKNOWN INDICATION
     Route: 065
     Dates: start: 20111205, end: 20120515
  11. ALEVE [Concomitant]
     Indication: PAIN IN EXTREMITY
     Route: 065
     Dates: start: 20111108
  12. ASCORBIC ACID [Concomitant]
     Indication: PRODUCT USED FOR UNKNOWN INDICATION
     Route: 065
     Dates: start: 20111118
  13. AVAPRO [Concomitant]
     Indication: HYPERTENSION
     Route: 065
     Dates: start: 20111118
  14. CLAVULIN [Concomitant]
     Indication: CELLULITIS
     Route: 065
  15. COLCHICINE [Concomitant]
     Indication: PAIN
     Route: 065
     Dates: start: 20120714, end: 20120714
  16. CRESTOR [Concomitant]
     Indication: HYPERCHOLESTEROLAEMIA
     Route: 065
  17. DIPHENHYDRAMINE [Concomitant]
     Indication: PRODUCT USED FOR UNKNOWN INDICATION
     Route: 065
     Dates: start: 20111205, end: 20120515
  18. DOCUSATE SODIUM [Concomitant]
     Indication: CONSTIPATION
     Route: 065
     Dates: start: 20120707, end: 20120725
  19. ENOXAPARIN [Concomitant]
     Indication: PRODUCT USED FOR UNKNOWN INDICATION
     Route: 065
     Dates: start: 20120129, end: 20120129
  20. FENOFIBRATE [Concomitant]
     Indication: HYPERCHOLESTEROLAEMIA
     Route: 065
     Dates: start: 20120725
  21. FENTANYL [Concomitant]
     Indication: PAIN
     Route: 065
     Dates: start: 20120707, end: 20120709
  22. FLUDROCORTISONE [Concomitant]
     Indication: PYREXIA
     Route: 065
     Dates: start: 20120901, end: 20120901
  23. GLUCOSAMINE SULPHATE [Concomitant]
     Indication: PRODUCT USED FOR UNKNOWN INDICATION
     Route: 065
  24. GRANISETRON [Concomitant]
     Indication: PRODUCT USED FOR UNKNOWN INDICATION
     Route: 065
     Dates: start: 20111205, end: 20120515
  25. HEPARIN SODIUM [Concomitant]
     Indication: THROMBOSIS
     Route: 065
     Dates: start: 20120307, end: 20120714
  26. HUMULIN [Concomitant]
     Indication: DIABETES MELLITUS
     Route: 065
     Dates: start: 20120901, end: 20120901
  27. HYDROCORTISONE [Concomitant]
     Indication: PYREXIA
     Route: 065
     Dates: start: 20120901, end: 20120901
  28. INSULIN ISOPHANE [Concomitant]
     Indication: DIABETES MELLITUS
     Route: 065
  29. KETOROLAC [Concomitant]
     Indication: PAIN
     Route: 065
     Dates: start: 20120707, end: 20120725
  30. METFORMIN [Concomitant]
     Indication: DIABETES MELLITUS
     Route: 065
  31. MOMETASONE [Concomitant]
     Indication: NASAL CONGESTION
     Route: 065
     Dates: start: 20120714, end: 20120725
  32. MORPHINE [Concomitant]
     Indication: PAIN
     Route: 065
     Dates: start: 20120707, end: 20120725
  33. OXYCOCET [Concomitant]
     Indication: PAIN IN EXTREMITY
     Route: 065
     Dates: start: 20120307, end: 20120407
  34. PIOGLITAZONE HYDROCHLORIDE [Concomitant]
     Indication: DIABETES MELLITUS
     Route: 065
     Dates: start: 20120625
  35. POTASSIUM CHLORIDE [Concomitant]
     Indication: BLOOD POTASSIUM DECREASED
     Route: 065
     Dates: start: 20120703, end: 20120706
  36. RANITIDINE [Concomitant]
     Indication: PRODUCT USED FOR UNKNOWN INDICATION
     Route: 065
     Dates: start: 20111205, end: 20120515
  37. SAXAGLIPTIN HYDROCHLORIDE [Concomitant]
     Indication: DIABETES MELLITUS
     Route: 065
  38. SODIUM CHLORIDE [Concomitant]
     Indication: DEHYDRATION
     Route: 065
     Dates: start: 20120719, end: 20120721
  39. SOLU-MEDROL [Concomitant]
     Indication: HYPOTENSION
     Route: 065
     Dates: start: 20111216, end: 20111216
  40. SULFADIAZINE [Concomitant]
     Indication: BLISTER
     Route: 065
     Dates: start: 20120327
  41. VITAMIN B12 [Concomitant]
     Indication: VITAMIN B12 DEFICIENCY
     Route: 065
     Dates: start: 20120326
  42. VITAMIN D [Concomitant]
     Indication: PRODUCT USED FOR UNKNOWN INDICATION
     Route: 065
     Dates: start: 20111128
  43. PIPERACILLIN SODIUM/TAZOBACTAM SODIUM [Concomitant]
     Indication: PRODUCT USED FOR UNKNOWN INDICATION
     Route: 065
  44. CLINDAMYCIN [Concomitant]
     Indication: PRODUCT USED FOR UNKNOWN INDICATION
     Route: 065
  45. GENTAMICIN SULFATE [Concomitant]
     Indication: PRODUCT USED FOR UNKNOWN INDICATION
     Route: 065
  46. PENICILLIN NOS [Concomitant]
     Indication: PRODUCT USED FOR UNKNOWN INDICATION
     Route: 065
  47. PREDNISONE [Concomitant]
     Indication: PRODUCT USED FOR UNKNOWN INDICATION
     Route: 065
  48. GLUCOSAMINE SULFATE [Concomitant]
     Indication: PRODUCT USED FOR UNKNOWN INDICATION
     Route: 065
  49. IRBESARTAN [Concomitant]
     Indication: PRODUCT USED FOR UNKNOWN INDICATION
     Route: 065
  50. VALACICLOVIR HYDROCHLORIDE [Concomitant]
     Indication: PRODUCT USED FOR UNKNOWN INDICATION
     Route: 065
  51. MAGNESIUM [Concomitant]
     Indication: PRODUCT USED FOR UNKNOWN INDICATION
     Route: 065
  52. FILGRASTIM [Concomitant]
     Indication: PRODUCT USED FOR UNKNOWN INDICATION
     Route: 065
  53. PHOSPHATE NOS [Concomitant]
     Indication: PRODUCT USED FOR UNKNOWN INDICATION
     Route: 065

REACTIONS (11)
  - Adrenal insufficiency [Recovered/Resolved]
  - Cellulitis [Recovered/Resolved]
  - Constipation [Recovered/Resolved]
  - Cytotoxic cardiomyopathy [Not Recovered/Not Resolved]
  - Fatigue [Recovered/Resolved]
  - Febrile neutropenia [Recovered/Resolved]
  - Pyrexia [Recovered/Resolved]
  - Hypotension [Recovered/Resolved]
  - Acute myocardial infarction [Not Recovered/Not Resolved]
  - Chills [Recovered/Resolved]
  - White blood cell count decreased [Recovered/Resolved]
